FAERS Safety Report 14768977 (Version 1)
Quarter: 2018Q2

REPORT INFORMATION
  Report Type: Spontaneous
  Country: US (occurrence: US)
  Receive Date: 20180411
  Receipt Date: 20180411
  Transmission Date: 20180711
  Serious: Yes (Life-Threatening, Disabling)
  Sender: FDA-Public Use
  Company Number: None

PATIENT
  Age: 51 Year
  Sex: Female
  Weight: 112.5 kg

DRUGS (1)
  1. LEVAQUIN [Suspect]
     Active Substance: LEVOFLOXACIN
     Indication: LUNG INFECTION
     Dates: start: 20160309, end: 20160320

REACTIONS (8)
  - Chest pain [None]
  - Blood pressure fluctuation [None]
  - Tendon rupture [None]
  - Myalgia [None]
  - Tendon pain [None]
  - Pain in extremity [None]
  - Muscle spasms [None]
  - Muscle twitching [None]

NARRATIVE: CASE EVENT DATE: 20160309
